FAERS Safety Report 4976991-7 (Version None)
Quarter: 2006Q2

REPORT INFORMATION
  Report Type: 
  Country: None (occurrence: None)
  Receive Date: 20060419
  Receipt Date: 20060213
  Transmission Date: 20061013
  Serious: Yes (Life-Threatening, Hospitalization)
  Sender: FDA-Public Use
  Company Number: US-AMGEN-US169431

PATIENT
  Sex: Female
  Weight: 87 kg

DRUGS (10)
  1. SENSIPAR [Suspect]
     Indication: HYPERPARATHYROIDISM SECONDARY
     Route: 048
     Dates: start: 20060125, end: 20060201
  2. ASPIRIN [Concomitant]
     Route: 048
     Dates: start: 20050716
  3. GLUCOTROL [Concomitant]
     Dates: start: 20050716
  4. IMDUR [Concomitant]
     Dates: start: 20030903
  5. LIPITOR [Concomitant]
     Dates: start: 20030903
  6. MINOXIDIL [Concomitant]
     Dates: start: 20050716
  7. PEPCID [Concomitant]
     Dates: start: 20050209
  8. PHOSLO [Concomitant]
     Dates: start: 20050831
  9. PLAVIX [Concomitant]
     Dates: start: 20000322
  10. REGLAN [Concomitant]
     Dates: start: 20040812

REACTIONS (1)
  - CONVULSION [None]
